FAERS Safety Report 18695113 (Version 1)
Quarter: 2021Q1

REPORT INFORMATION
  Report Type: Spontaneous
  Country: US (occurrence: US)
  Receive Date: 20210104
  Receipt Date: 20210104
  Transmission Date: 20210419
  Serious: Yes (Disabling, Other)
  Sender: FDA-Public Use
  Company Number: US-KVK-TECH, INC-20201200021

PATIENT
  Age: 82 Year
  Sex: Female

DRUGS (2)
  1. OXYCODONE HYDROCHLORIDE UNSPECIFIED [Suspect]
     Active Substance: OXYCODONE HYDROCHLORIDE
     Indication: PRODUCT USED FOR UNKNOWN INDICATION
     Dosage: UNKNOWN DOSE
  2. DILAUDID [Concomitant]
     Active Substance: HYDROMORPHONE HYDROCHLORIDE
     Dosage: UNKNOWN DOSE

REACTIONS (5)
  - Drug ineffective [Unknown]
  - Bedridden [Unknown]
  - Drug resistance [Unknown]
  - Brain neoplasm [Unknown]
  - Blindness unilateral [Unknown]
